FAERS Safety Report 5460657-3 (Version None)
Quarter: 2007Q3

REPORT INFORMATION
  Report Type: 
  Country: None (occurrence: None)
  Receive Date: 20070918
  Receipt Date: 20070903
  Transmission Date: 20080115
  Serious: Yes (Other)
  Sender: FDA-Public Use
  Company Number: 8026539

PATIENT
  Age: 38 Year
  Sex: Male
  Weight: 80 kg

DRUGS (4)
  1. XUSAL [Suspect]
     Dosage: 10 DF ONCE PO
     Route: 048
     Dates: start: 20070903
  2. PARACETAMOL [Suspect]
     Dosage: 10000 MG ONCE PO
     Route: 048
     Dates: start: 20070903
  3. CITALOPRAM HYDROBROMIDE [Suspect]
     Dosage: 800 MG ONCE PO
     Route: 048
     Dates: start: 20070903
  4. WHISKEY [Suspect]
     Dosage: PO
     Route: 048

REACTIONS (2)
  - SOMNOLENCE [None]
  - SUICIDE ATTEMPT [None]
